FAERS Safety Report 8976478 (Version 1)
Quarter: 2012Q4

REPORT INFORMATION
  Report Type: Report from Study
  Country: CA (occurrence: CA)
  Receive Date: 20121220
  Receipt Date: 20121220
  Transmission Date: 20130627
  Serious: Yes (Other)
  Sender: FDA-Public Use
  Company Number: CA-ROCHE-1167468

PATIENT
  Sex: Male

DRUGS (5)
  1. OMALIZUMAB [Suspect]
     Indication: PRODUCT USED FOR UNKNOWN INDICATION
     Route: 065
     Dates: start: 20060630
  2. PREDNISONE [Concomitant]
     Dosage: 10 mg/day
     Route: 065
  3. PREDNISONE [Concomitant]
     Dosage: 20 mg/day
     Route: 065
  4. PREDNISONE [Concomitant]
     Route: 065
  5. AVELOX [Concomitant]

REACTIONS (10)
  - Hypersensitivity [Unknown]
  - Asthma [Unknown]
  - Influenza [Unknown]
  - Malaise [Unknown]
  - Respiratory tract congestion [Unknown]
  - Sinusitis [Unknown]
  - Pulmonary congestion [Unknown]
  - Nasal polyps [Unknown]
  - Dyspepsia [Unknown]
  - Oropharyngeal pain [Unknown]
